FAERS Safety Report 19749550 (Version 1)
Quarter: 2021Q3

REPORT INFORMATION
  Report Type: Spontaneous
  Country: US (occurrence: US)
  Receive Date: 20210826
  Receipt Date: 20210826
  Transmission Date: 20211014
  Serious: No
  Sender: FDA-Public Use
  Company Number: None

PATIENT
  Age: 70 Year
  Sex: Male

DRUGS (4)
  1. TOCILIZUMAB (TOCILIZUMAB 20MG/ML INJ,SOLN,20ML) [Suspect]
     Active Substance: TOCILIZUMAB
     Indication: COVID-19 PNEUMONIA
  2. APIXABAN (APIXABAN 5MG TAB) [Suspect]
     Active Substance: APIXABAN
     Indication: PROPHYLAXIS
  3. TOCILIZUMAB (TOCILIZUMAB 20MG/ML INJ,SOLN,20ML) [Suspect]
     Active Substance: TOCILIZUMAB
     Indication: PULMONARY EMBOLISM
     Route: 042
     Dates: start: 20210821, end: 20210821
  4. APIXABAN (APIXABAN 5MG TAB) [Suspect]
     Active Substance: APIXABAN
     Indication: PULMONARY EMBOLISM
     Route: 048
     Dates: start: 20210820

REACTIONS (1)
  - Haematuria [None]

NARRATIVE: CASE EVENT DATE: 20210822
